FAERS Safety Report 5011903-1 (Version None)
Quarter: 2006Q2

REPORT INFORMATION
  Report Type: 
  Country: None (occurrence: None)
  Receive Date: 20060526
  Receipt Date: 20060516
  Transmission Date: 20061013
  Serious: Yes (Life-Threatening, Other)
  Sender: FDA-Public Use
  Company Number: FR-BRISTOL-MYERS SQUIBB COMPANY-13381231

PATIENT
  Age: 60 Year
  Sex: Male

DRUGS (5)
  1. VIDEX EC [Suspect]
     Indication: HIV INFECTION
     Route: 048
     Dates: start: 20041118, end: 20060405
  2. VIREAD [Suspect]
     Indication: HIV INFECTION
     Dates: start: 20031002, end: 20060405
  3. REYATAZ [Concomitant]
     Dates: start: 20050814, end: 20060330
  4. NORVIR [Concomitant]
     Dates: start: 20050814, end: 20060330
  5. KALETRA [Concomitant]
     Dates: start: 20060330, end: 20060405

REACTIONS (4)
  - ANOREXIA [None]
  - CYTOLYTIC HEPATITIS [None]
  - LACTIC ACIDOSIS [None]
  - WEIGHT DECREASED [None]
